FAERS Safety Report 8816400 (Version 1)
Quarter: 2012Q4

REPORT INFORMATION
  Report Type: Spontaneous
  Country: US (occurrence: None)
  Receive Date: 20120928
  Receipt Date: 20120928
  Transmission Date: 20130627
  Serious: Yes (Hospitalization)
  Sender: FDA-Public Use
  Company Number: None

PATIENT
  Age: 74 Year
  Sex: Male
  Weight: 70.2 kg

DRUGS (12)
  1. NOVOLOG [Suspect]
     Indication: DIABETES MELLITUS
     Dosage: pump , chronic
  2. LEVOTHYROXINE [Concomitant]
  3. ASA [Concomitant]
  4. FISH OIL [Concomitant]
  5. CENTRUM SILVER [Concomitant]
  6. NORVASC [Concomitant]
  7. ZOLOFT [Concomitant]
  8. ZETIA [Concomitant]
  9. VIT D [Concomitant]
  10. FOSAMAX [Concomitant]
  11. COREG [Concomitant]
  12. VIT C [Concomitant]

REACTIONS (5)
  - Hypoglycaemia [None]
  - Blood glucose increased [None]
  - Inappropriate antidiuretic hormone secretion [None]
  - Memory impairment [None]
  - Device malfunction [None]
